FAERS Safety Report 5828020-0 (Version None)
Quarter: 2008Q3

REPORT INFORMATION
  Report Type: 
  Country: None (occurrence: None)
  Receive Date: 20080729
  Receipt Date: 20080716
  Transmission Date: 20090109
  Serious: Yes (Other)
  Sender: FDA-Public Use
  Company Number: TCI2007A05351

PATIENT
  Age: 77 Year
  Sex: Female

DRUGS (3)
  1. LANSOPRAZOLE [Suspect]
     Indication: GASTROINTESTINAL HAEMORRHAGE
     Dosage: PER ORAL
     Route: 048
  2. LANSOPRAZOLE [Suspect]
     Indication: HAEMORRHAGE PROPHYLAXIS
     Dosage: PER ORAL
     Route: 048
  3. WARFARIN SODIUM [Suspect]
     Indication: DRUG USE FOR UNKNOWN INDICATION
     Dosage: 3 MG (3 MG,  1 D), PER ORAL
     Route: 048

REACTIONS (4)
  - CARDIAC TAMPONADE [None]
  - DRUG INTERACTION [None]
  - HYPOTENSION [None]
  - INTERNATIONAL NORMALISED RATIO INCREASED [None]
